FAERS Safety Report 23564847 (Version 4)
Quarter: 2024Q1

REPORT INFORMATION
  Report Type: Spontaneous
  Country: US (occurrence: US)
  Receive Date: 20240226
  Receipt Date: 20240327
  Transmission Date: 20240410
  Serious: Yes (Other)
  Sender: FDA-Public Use
  Company Number: US-MYLANLABS-2024M1015676

PATIENT
  Age: 81 Year
  Sex: Female
  Weight: 65.32 kg

DRUGS (3)
  1. CLONIDINE TRANSDERMAL SYSTEM [Suspect]
     Active Substance: CLONIDINE
     Indication: Hypertension
     Dosage: UNK, 0.2 MILLIGRAM, QW (A PATCH ONCE A WEEK)
     Route: 062
     Dates: end: 20240218
  2. LOSARTAN [Concomitant]
     Active Substance: LOSARTAN
     Dosage: UNK
     Route: 065
  3. EPLERENONE [Concomitant]
     Active Substance: EPLERENONE
     Indication: Diuretic therapy
     Dosage: UNK
     Route: 065

REACTIONS (10)
  - Hypertension [Recovering/Resolving]
  - Application site discomfort [Unknown]
  - Application site inflammation [Unknown]
  - Application site rash [Unknown]
  - Application site pruritus [Not Recovered/Not Resolved]
  - Application site discolouration [Unknown]
  - Application site pain [Not Recovered/Not Resolved]
  - Fatigue [Unknown]
  - Product quality issue [Unknown]
  - Drug ineffective [Unknown]

NARRATIVE: CASE EVENT DATE: 20240219
